FAERS Safety Report 8768495 (Version 2)
Quarter: 2012Q4

REPORT INFORMATION
  Report Type: Report from Study
  Country: BR (occurrence: BR)
  Receive Date: 20120905
  Receipt Date: 20120914
  Transmission Date: 20130627
  Serious: Yes (Hospitalization)
  Sender: FDA-Public Use
  Company Number: BR-ROCHE-1114940

PATIENT
  Sex: Female
  Weight: 59 kg

DRUGS (3)
  1. MABTHERA [Suspect]
     Indication: RHEUMATOID ARTHRITIS
     Route: 065
     Dates: start: 20110923
  2. RIVOTRIL [Concomitant]
  3. PREDNISONE [Concomitant]

REACTIONS (2)
  - Pancreatitis [Unknown]
  - Spinal disorder [Unknown]
